FAERS Safety Report 25306474 (Version 1)
Quarter: 2025Q2

REPORT INFORMATION
  Report Type: Spontaneous
  Country: US (occurrence: US)
  Receive Date: 20250513
  Receipt Date: 20250513
  Transmission Date: 20250717
  Serious: No
  Sender: UCB
  Company Number: US-UCBSA-2025011989

PATIENT
  Age: 45 Year
  Sex: Female

DRUGS (1)
  1. CIMZIA [Suspect]
     Active Substance: CERTOLIZUMAB PEGOL
     Indication: Crohn^s disease
     Dosage: 400 MILLIGRAM, EV 2 WEEKS(QOW)
     Route: 058
     Dates: start: 20250224

REACTIONS (10)
  - Pyrexia [Recovered/Resolved]
  - Eye swelling [Recovering/Resolving]
  - Eye pain [Recovering/Resolving]
  - Neck pain [Recovering/Resolving]
  - Injection site reaction [Recovering/Resolving]
  - Fatigue [Recovering/Resolving]
  - Photophobia [Recovering/Resolving]
  - Eye disorder [Recovering/Resolving]
  - Nausea [Recovering/Resolving]
  - Rash maculo-papular [Recovering/Resolving]

NARRATIVE: CASE EVENT DATE: 20250201
